FAERS Safety Report 5405623-9 (Version None)
Quarter: 2007Q3

REPORT INFORMATION
  Report Type: 
  Country: None (occurrence: None)
  Receive Date: 20070806
  Receipt Date: 20070726
  Transmission Date: 20080115
  Serious: Yes (Hospitalization)
  Sender: FDA-Public Use
  Company Number: PHHO2007BE12371

PATIENT
  Age: 49 Year
  Sex: Female
  Weight: 58 kg

DRUGS (3)
  1. ZOLEDRONIC ACID [Suspect]
     Indication: METASTASES TO BONE
     Dosage: 4 MG, TIW
     Route: 042
     Dates: start: 20030825, end: 20070215
  2. VITAMIN D [Concomitant]
  3. CALCIUM CHLORIDE [Concomitant]

REACTIONS (4)
  - BONE SWELLING [None]
  - OSTEONECROSIS [None]
  - PAIN IN JAW [None]
  - PROSTHESIS IMPLANTATION [None]
